FAERS Safety Report 16064496 (Version 1)
Quarter: 2019Q1

REPORT INFORMATION
  Report Type: Spontaneous
  Country: DE (occurrence: DE)
  Receive Date: 20190312
  Receipt Date: 20190312
  Transmission Date: 20190418
  Serious: Yes (Hospitalization, Other)
  Sender: FDA-Public Use
  Company Number: DE-MYLANLABS-2019M1022532

PATIENT
  Sex: Female
  Weight: 75 kg

DRUGS (2)
  1. LEPONEX [Suspect]
     Active Substance: CLOZAPINE
     Indication: SCHIZOPHRENIA
     Dosage: 25 MILLIGRAM, QD
     Route: 048
     Dates: start: 199412, end: 2002
  2. CHLORALDURAT [Concomitant]
     Active Substance: CHLORAL HYDRATE
     Indication: INSOMNIA
     Dosage: UNK

REACTIONS (7)
  - Biliary cirrhosis [Unknown]
  - Gamma-glutamyltransferase increased [Not Recovered/Not Resolved]
  - Antinuclear antibody positive [Unknown]
  - Blood alkaline phosphatase increased [Not Recovered/Not Resolved]
  - Hepatic enzyme increased [Unknown]
  - Blood bilirubin increased [Not Recovered/Not Resolved]
  - Aspartate aminotransferase increased [Not Recovered/Not Resolved]

NARRATIVE: CASE EVENT DATE: 1999
